FAERS Safety Report 5213892-3 (Version None)
Quarter: 2007Q1

REPORT INFORMATION
  Report Type: 
  Country: None (occurrence: None)
  Receive Date: 20070117
  Receipt Date: 20061117
  Transmission Date: 20070707
  Serious: Yes (Death)
  Sender: FDA-Public Use
  Company Number: 3769

PATIENT
  Age: 40 Year

DRUGS (1)
  1. METFORMIN HCL [Suspect]
     Dosage: INGESTION OF 130-170 TABLETS

REACTIONS (21)
  - ABNORMAL BEHAVIOUR [None]
  - AGGRESSION [None]
  - APNOEA [None]
  - BALANCE DISORDER [None]
  - BLOOD CREATINE INCREASED [None]
  - BLOOD GLUCOSE DECREASED [None]
  - BLOOD GLUCOSE INCREASED [None]
  - CARDIAC ARREST [None]
  - CARDIO-RESPIRATORY ARREST [None]
  - DIALYSIS [None]
  - DISORIENTATION [None]
  - HEART RATE DECREASED [None]
  - HYPERHIDROSIS [None]
  - HYPOTENSION [None]
  - INCORRECT DOSE ADMINISTERED [None]
  - LACTIC ACIDOSIS [None]
  - NEUROLOGICAL SYMPTOM [None]
  - NO THERAPEUTIC RESPONSE [None]
  - SOMNOLENCE [None]
  - SUICIDE ATTEMPT [None]
  - URINE OUTPUT DECREASED [None]
